FAERS Safety Report 10376832 (Version 1)
Quarter: 2014Q1

REPORT INFORMATION
  Report Type: Spontaneous
  Country: US (occurrence: None)
  Receive Date: 20140306
  Receipt Date: 20140306
  Transmission Date: 20141002
  Serious: Yes (Hospitalization)
  Sender: FDA-Public Use
  Company Number: 163-21880-13122335

PATIENT
  Age: 66 Year
  Sex: Female

DRUGS (1)
  1. REVLIMID (LENALIDOMIDIE) (25 MILLIGRAM, CAPSULES) [Suspect]
     Indication: PLASMA CELL MYELOMA
     Dosage: 25MG, 1 IN 1D, PO
     Route: 048
     Dates: start: 200812

REACTIONS (2)
  - Bronchitis [None]
  - Pneumonia [None]
